FAERS Safety Report 15459045 (Version 1)
Quarter: 2018Q4

REPORT INFORMATION
  Report Type: Spontaneous
  Country: US (occurrence: US)
  Receive Date: 20181001
  Receipt Date: 20181001
  Transmission Date: 20190204
  Serious: Yes (Life-Threatening, Hospitalization)
  Sender: FDA-Public Use
  Company Number: None

PATIENT
  Age: 62 Year
  Sex: Male

DRUGS (1)
  1. DOFETILIDE. [Suspect]
     Active Substance: DOFETILIDE

REACTIONS (7)
  - Ventricular tachycardia [None]
  - Electrocardiogram QT prolonged [None]
  - Pneumonia [None]
  - Loss of consciousness [None]
  - Dyspnoea [None]
  - Pleural effusion [None]
  - Cardio-respiratory arrest [None]

NARRATIVE: CASE EVENT DATE: 20171208
